FAERS Safety Report 25703913 (Version 1)
Quarter: 2025Q3

REPORT INFORMATION
  Report Type: 
  Country: CN (occurrence: CN)
  Receive Date: 20250820
  Receipt Date: 20250820
  Transmission Date: 20251020
  Serious: Yes (Hospitalization)
  Sender: JIANGSU HANSOH PHARMACEUTICAL GROUP CO., LTD.
  Company Number: CN-Hansoh-20252190015180

PATIENT
  Age: 67 Year
  Sex: Male
  Weight: 65.8 kg

DRUGS (3)
  1. IVONESCIMAB [Suspect]
     Active Substance: IVONESCIMAB
     Indication: Lung neoplasm malignant
     Dosage: 300 MG, QD
     Route: 041
     Dates: start: 20250709, end: 20250709
  2. PEMETREXED [Suspect]
     Active Substance: PEMETREXED
     Indication: Lung neoplasm malignant
     Dosage: 800 MG, QD
     Route: 041
     Dates: start: 20250709, end: 20250709
  3. CARBOPLATIN [Suspect]
     Active Substance: CARBOPLATIN
     Indication: Lung neoplasm malignant
     Dosage: 600 MG, QD
     Route: 041
     Dates: start: 20250709, end: 20250709

REACTIONS (1)
  - Hepatic function abnormal [Recovering/Resolving]

NARRATIVE: CASE EVENT DATE: 20250730
